FAERS Safety Report 23056369 (Version 2)
Quarter: 2023Q4

REPORT INFORMATION
  Report Type: Spontaneous
  Country: SK (occurrence: SK)
  Receive Date: 20231011
  Receipt Date: 20231127
  Transmission Date: 20240110
  Serious: Yes (Other)
  Sender: FDA-Public Use
  Company Number: SK-CELLTRION HEALTHCARE HUNGARY KFT-2023SK018407

PATIENT
  Age: 42 Year
  Sex: Female

DRUGS (11)
  1. DEXAMETHASONE [Suspect]
     Active Substance: DEXAMETHASONE
     Indication: Product used for unknown indication
     Route: 065
     Dates: start: 202205
  2. MOXIFLOXACIN [Suspect]
     Active Substance: MOXIFLOXACIN
     Indication: Antibiotic therapy
     Dosage: NON-TARGETED 2-COMBINATION ATB THERAPY (INITIATED FROM THE BEGINNING OF HOSPITALIZATION)
     Route: 065
     Dates: start: 202205
  3. CEFOTAXIME [Suspect]
     Active Substance: CEFOTAXIME SODIUM
     Indication: Antibiotic therapy
     Dosage: NON-TARGETED 2-COMBINATION ATB THERAPY (INITIATED FROM THE BEGINNING OF HOSPITALISATION)
     Route: 065
     Dates: start: 202205
  4. PREDNISONE [Suspect]
     Active Substance: PREDNISONE
     Indication: Product used for unknown indication
     Route: 065
     Dates: end: 202205
  5. AZITHROMYCIN [Suspect]
     Active Substance: AZITHROMYCIN
     Indication: Antibiotic therapy
     Route: 065
     Dates: start: 202204
  6. AMOXICILLIN\CLAVULANATE POTASSIUM [Suspect]
     Active Substance: AMOXICILLIN\CLAVULANATE POTASSIUM
     Indication: Antibiotic therapy
     Route: 065
     Dates: start: 202204
  7. AZOXIMER BROMIDE [Concomitant]
     Active Substance: AZOXIMER BROMIDE
     Indication: Product used for unknown indication
     Route: 065
     Dates: start: 202205
  8. UNSPECIFIED INGREDIENT [Concomitant]
     Active Substance: UNSPECIFIED INGREDIENT
     Indication: Prophylaxis
     Dosage: IN A PREVENTIVE DOSE
     Route: 065
     Dates: start: 202205
  9. REMDESIVIR [Concomitant]
     Active Substance: REMDESIVIR
     Indication: Product used for unknown indication
     Route: 065
     Dates: start: 202205, end: 202205
  10. BARICITINIB [Concomitant]
     Active Substance: BARICITINIB
     Indication: Product used for unknown indication
     Route: 065
     Dates: start: 202205, end: 202205
  11. PROBIOTICS NOS [Concomitant]
     Active Substance: PROBIOTICS NOS
     Indication: Product used for unknown indication
     Route: 065
     Dates: start: 202205

REACTIONS (1)
  - Oral fungal infection [Unknown]

NARRATIVE: CASE EVENT DATE: 20220501
